FAERS Safety Report 5796399-4 (Version None)
Quarter: 2008Q2

REPORT INFORMATION
  Report Type: 
  Country: None (occurrence: None)
  Receive Date: 20080630
  Receipt Date: 20080630
  Transmission Date: 20081010
  Serious: Yes (Life-Threatening)
  Sender: FDA-Public Use
  Company Number: None

PATIENT
  Age: 84 Year
  Sex: Male

DRUGS (1)
  1. LEVAQUIN [Suspect]
     Dates: start: 20080606, end: 20080611

REACTIONS (1)
  - HYPOGLYCAEMIA [None]
